FAERS Safety Report 7612268-9 (Version None)
Quarter: 2011Q3

REPORT INFORMATION
  Report Type: 
  Country: None (occurrence: None)
  Receive Date: 20110715
  Receipt Date: 20110704
  Transmission Date: 20111222
  Serious: Yes (Hospitalization, Other)
  Sender: FDA-Public Use
  Company Number: IL-SANOFI-AVENTIS-2011SA042632

PATIENT
  Age: 76 Year
  Sex: Male
  Weight: 77 kg

DRUGS (11)
  1. XELODA [Suspect]
     Route: 065
  2. IRINOTECAN HYDROCHLORIDE [Suspect]
     Dosage: FREQUENCY: EVERY 2 WEEKS FOR 20 CYCLES
     Route: 065
  3. ALLIUM SATIVUM [Concomitant]
  4. AVASTIN [Suspect]
     Route: 065
     Dates: start: 20070301, end: 20090901
  5. VASCASE [Concomitant]
  6. MITOMYCIN [Concomitant]
     Dates: start: 20101001, end: 20110201
  7. OXALIPLATIN [Suspect]
     Route: 065
     Dates: start: 20070301, end: 20090901
  8. IRINOTECAN HYDROCHLORIDE [Suspect]
     Route: 065
  9. FLUOROURACIL [Concomitant]
     Dates: start: 20070301
  10. AVASTIN [Suspect]
     Dosage: DOSE: EVERY 2 WEEKS FOR 20 CYCLES.
     Route: 065
     Dates: end: 20101001
  11. LEUCOVORIN CALCIUM [Concomitant]

REACTIONS (9)
  - PARAESTHESIA [None]
  - NAUSEA [None]
  - ASTHENIA [None]
  - JAUNDICE [None]
  - ALOPECIA [None]
  - DECREASED APPETITE [None]
  - FATIGUE [None]
  - DEPRESSION [None]
  - PULMONARY EMBOLISM [None]
